FAERS Safety Report 5612208-8 (Version None)
Quarter: 2008Q1

REPORT INFORMATION
  Report Type: 
  Country: None (occurrence: None)
  Receive Date: 20080131
  Receipt Date: 20080131
  Transmission Date: 20080703
  Serious: Yes (Other)
  Sender: FDA-Public Use
  Company Number: None

PATIENT
  Sex: Male
  Weight: 109.7705 kg

DRUGS (1)
  1. VYTORIN [Suspect]
     Indication: BLOOD CHOLESTEROL INCREASED
     Dosage: 40/20 MG ONCE DAILY PO
     Route: 048
     Dates: start: 20041113, end: 20080101

REACTIONS (8)
  - ABASIA [None]
  - ARTHRALGIA [None]
  - CONDITION AGGRAVATED [None]
  - CRYING [None]
  - DRUG EFFECT DECREASED [None]
  - HIGH DENSITY LIPOPROTEIN DECREASED [None]
  - LOW DENSITY LIPOPROTEIN INCREASED [None]
  - MOVEMENT DISORDER [None]
